FAERS Safety Report 10283459 (Version 1)
Quarter: 2014Q3

REPORT INFORMATION
  Report Type: Spontaneous
  Country: US (occurrence: None)
  Receive Date: 20140702
  Receipt Date: 20140702
  Transmission Date: 20150326
  Serious: Yes (Hospitalization)
  Sender: FDA-Public Use
  Company Number: 2014EXPUS00187

PATIENT
  Age: 57 Year
  Sex: Female
  Weight: 93.9 kg

DRUGS (1)
  1. EXPAREL [Suspect]
     Active Substance: BUPIVACAINE
     Indication: POSTOPERATIVE ANALGESIA
     Dosage: SINGLE-SHOT FEMORAL AND SCIATIC NERVE BLOCKS USING 7ML AND 14M1 RESPECTIVELY, PERINEURAL

REACTIONS (1)
  - Sensorimotor disorder [None]

NARRATIVE: CASE EVENT DATE: 20140516
